FAERS Safety Report 24718042 (Version 1)
Quarter: 2024Q4

REPORT INFORMATION
  Report Type: Spontaneous
  Country: US (occurrence: None)
  Receive Date: 20241210
  Receipt Date: 20241210
  Transmission Date: 20250114
  Serious: Yes (unspecified)
  Sender: Public
  Company Number: None

PATIENT
  Age: 57 Year
  Sex: Female

DRUGS (1)
  1. HUMIRA [Suspect]
     Active Substance: ADALIMUMAB
     Indication: Rheumatoid arthritis
     Dosage: FREQUENCY : EVERY OTHER WEEK;?

REACTIONS (8)
  - Headache [None]
  - Nasopharyngitis [None]
  - Feeling of body temperature change [None]
  - Dyspnoea [None]
  - Nausea [None]
  - Vomiting [None]
  - Cough [None]
  - Abdominal pain upper [None]
